FAERS Safety Report 19028342 (Version 2)
Quarter: 2021Q2

REPORT INFORMATION
  Report Type: Report from Study
  Country: CA (occurrence: CA)
  Receive Date: 20210318
  Receipt Date: 20210415
  Transmission Date: 20210717
  Serious: Yes (Other)
  Sender: FDA-Public Use
  Company Number: CA-TAKEDA-2020TUS042104

PATIENT
  Age: 62 Year
  Sex: Female

DRUGS (3)
  1. VALACYCLOVIR [Concomitant]
     Active Substance: VALACYCLOVIR HYDROCHLORIDE
     Dosage: 500 MILLIGRAM, QD
     Route: 065
  2. IXAZOMIB [Suspect]
     Active Substance: IXAZOMIB
     Indication: PLASMA CELL MYELOMA
     Dosage: 3 MILLIGRAM
     Route: 048
     Dates: start: 20200930
  3. ASA [Concomitant]
     Active Substance: ASPIRIN
     Dosage: 81 MILLIGRAM, QD
     Route: 065

REACTIONS (19)
  - Chills [Not Recovered/Not Resolved]
  - Nausea [Recovered/Resolved]
  - Drug ineffective [Unknown]
  - Eye irritation [Unknown]
  - Plasma cell myeloma [Unknown]
  - Paraesthesia oral [Recovered/Resolved]
  - Blood immunoglobulin G increased [Unknown]
  - Eye pruritus [Recovered/Resolved]
  - Aphthous ulcer [Recovered/Resolved]
  - Dysuria [Recovered/Resolved]
  - Light chain analysis increased [Unknown]
  - Dry eye [Unknown]
  - Diarrhoea [Unknown]
  - Hunger [Recovered/Resolved]
  - Pyrexia [Unknown]
  - Fatigue [Recovered/Resolved]
  - Off label use [Unknown]
  - Sensation of foreign body [Recovered/Resolved]
  - Ear pain [Unknown]

NARRATIVE: CASE EVENT DATE: 20200930
